FAERS Safety Report 8070765-9 (Version None)
Quarter: 2012Q1

REPORT INFORMATION
  Report Type: 
  Country: None (occurrence: None)
  Receive Date: 20120125
  Receipt Date: 20120112
  Transmission Date: 20120608
  Serious: Yes (Other)
  Sender: FDA-Public Use
  Company Number: FR-ELI_LILLY_AND_COMPANY-FR201112001257

PATIENT
  Age: 23 Year
  Sex: Male
  Weight: 90 kg

DRUGS (7)
  1. TOPIRAMATE [Concomitant]
     Indication: PSYCHOTIC DISORDER
     Dosage: 50 MG, QD
     Route: 048
     Dates: start: 20110911
  2. PROZAC [Suspect]
     Dosage: 20 MG, QD
     Route: 048
     Dates: start: 20110911
  3. LOXAPINE HCL [Concomitant]
     Dosage: 75 DF, QD
     Route: 048
     Dates: start: 20110911
  4. TRIHEXYPHENIDYL HYDROCHLORIDE [Concomitant]
     Dosage: UNK, UNKNOWN
     Route: 048
     Dates: start: 20110911
  5. OLANZAPINE [Suspect]
     Indication: SCHIZOPHRENIA
     Dosage: 300 MG, EVERY TWO WEEKS
     Route: 030
     Dates: start: 20110916
  6. CLONAZEPAM [Concomitant]
     Dosage: 4 DROPS DAILY
     Route: 048
     Dates: start: 20110911
  7. MEPROBAMATE [Concomitant]
     Dosage: UNK, UNKNOWN
     Route: 048
     Dates: start: 20110911

REACTIONS (7)
  - EUPHORIC MOOD [None]
  - ATAXIA [None]
  - BLOOD PRESSURE FLUCTUATION [None]
  - DYSARTHRIA [None]
  - ASTHENIA [None]
  - DISORIENTATION [None]
  - DIZZINESS [None]
